FAERS Safety Report 20129765 (Version 1)
Quarter: 2021Q4

REPORT INFORMATION
  Report Type: Spontaneous
  Country: US (occurrence: US)
  Receive Date: 20211130
  Receipt Date: 20211130
  Transmission Date: 20220303
  Serious: Yes (Other)
  Sender: FDA-Public Use
  Company Number: US-Accord-245885

PATIENT
  Sex: Male

DRUGS (1)
  1. ETOPOSIDE [Suspect]
     Active Substance: ETOPOSIDE
     Indication: Product used for unknown indication

REACTIONS (6)
  - Febrile neutropenia [Unknown]
  - Toxic encephalopathy [Unknown]
  - Thrombocytopenia [Unknown]
  - Stomatitis [Unknown]
  - Hypertension [Unknown]
  - Pyrexia [Unknown]
